FAERS Safety Report 7027059-X (Version None)
Quarter: 2010Q4

REPORT INFORMATION
  Report Type: 
  Country: None (occurrence: None)
  Receive Date: 20101004
  Receipt Date: 20100922
  Transmission Date: 20110411
  Serious: Yes (Hospitalization)
  Sender: FDA-Public Use
  Company Number: US-JNJFOC-20100904005

PATIENT
  Sex: Female
  Weight: 55.88 kg

DRUGS (9)
  1. REMICADE [Suspect]
     Indication: CROHN'S DISEASE
     Route: 042
  2. REMICADE [Suspect]
     Route: 042
  3. 5-ASA [Concomitant]
     Route: 048
  4. PREVACID [Concomitant]
  5. ANTIBIOTICS [Concomitant]
     Indication: INFLAMMATORY BOWEL DISEASE
  6. PREDNISONE [Concomitant]
  7. MIRALAX [Concomitant]
  8. VITAMIN TAB [Concomitant]
  9. CALCIUM [Concomitant]

REACTIONS (1)
  - CROHN'S DISEASE [None]
